FAERS Safety Report 6817998-4 (Version None)
Quarter: 2010Q3

REPORT INFORMATION
  Report Type: 
  Country: None (occurrence: None)
  Receive Date: 20100706
  Receipt Date: 20100625
  Transmission Date: 20110219
  Serious: Yes (Hospitalization)
  Sender: FDA-Public Use
  Company Number: GXKR2010ES07100

PATIENT
  Age: 62 Year
  Sex: Male

DRUGS (2)
  1. ALLOPURINOL [Suspect]
     Indication: HYPERURICAEMIA
     Route: 065
  2. FUROSEMIDE (NGX) [Suspect]
     Indication: HYPERCALCAEMIA
     Route: 065

REACTIONS (5)
  - DECREASED APPETITE [None]
  - HEPATITIS [None]
  - HYPERCALCAEMIA [None]
  - PORTAL HYPERTENSION [None]
  - WEIGHT DECREASED [None]
